FAERS Safety Report 6503084-X (Version None)
Quarter: 2009Q4

REPORT INFORMATION
  Report Type: 
  Country: None (occurrence: None)
  Receive Date: 20091217
  Receipt Date: 20091208
  Transmission Date: 20100525
  Serious: Yes (Other)
  Sender: FDA-Public Use
  Company Number: PHHY2009FR43934

PATIENT
  Sex: Female
  Weight: 58 kg

DRUGS (6)
  1. TASIGNA [Suspect]
     Indication: CHRONIC MYELOID LEUKAEMIA
     Dosage: 400 MG, BID
     Route: 048
     Dates: start: 20090930, end: 20091002
  2. TASIGNA [Suspect]
     Dosage: 600 MG/DAY
     Dates: start: 20091005
  3. TASIGNA [Suspect]
     Dosage: 800 MG/DAY
  4. LEVOTHYROXINE SODIUM [Concomitant]
     Indication: THYROIDECTOMY
     Dosage: 125 ?G/DAY
     Dates: start: 20050101
  5. CALCIDIA [Concomitant]
     Indication: THYROIDECTOMY
     Dosage: UNK
     Dates: start: 20050101
  6. UN-ALFA [Concomitant]
     Indication: THYROIDECTOMY
     Dosage: UNK
     Dates: start: 20050101

REACTIONS (10)
  - ARTHRALGIA [None]
  - ERYTHEMA [None]
  - PAIN OF SKIN [None]
  - PRURITUS [None]
  - RASH GENERALISED [None]
  - SKIN BURNING SENSATION [None]
  - SKIN LESION [None]
  - SKIN PLAQUE [None]
  - SLEEP DISORDER [None]
  - VISUAL ACUITY REDUCED [None]
